FAERS Safety Report 11408531 (Version 3)
Quarter: 2015Q4

REPORT INFORMATION
  Report Type: Report from Study
  Country: US (occurrence: US)
  Receive Date: 20150822
  Receipt Date: 20151202
  Transmission Date: 20160304
  Serious: Yes (Hospitalization, Other)
  Sender: FDA-Public Use
  Company Number: PHEH2015US016324

PATIENT
  Age: 35 Year
  Sex: Female
  Weight: 58.96 kg

DRUGS (9)
  1. VARIVAX [Concomitant]
     Active Substance: VARICELLA-ZOSTER VIRUS STRAIN OKA/MERCK LIVE ANTIGEN
     Indication: PRODUCT USED FOR UNKNOWN INDICATION
     Dosage: 1 DF, UNK
     Route: 058
  2. PRENATAL [Concomitant]
     Active Substance: VITAMINS
     Indication: PRODUCT USED FOR UNKNOWN INDICATION
     Dosage: 1 DF, QD
     Route: 048
     Dates: start: 20090625
  3. PROZAC [Concomitant]
     Active Substance: FLUOXETINE HYDROCHLORIDE
     Indication: PRODUCT USED FOR UNKNOWN INDICATION
     Dosage: 1 DF, QD
     Route: 048
  4. CLONAZEPAM. [Concomitant]
     Active Substance: CLONAZEPAM
     Indication: PRODUCT USED FOR UNKNOWN INDICATION
     Dosage: 0.5 MG, QHS
     Route: 065
  5. KEFLEX//CEFALEXIN [Concomitant]
     Indication: PRODUCT USED FOR UNKNOWN INDICATION
     Dosage: 250 MG, QD
     Route: 048
     Dates: start: 20090625
  6. FERROUS SULFATE [Concomitant]
     Active Substance: FERROUS SULFATE\FERROUS SULFATE, DRIED
     Indication: PRODUCT USED FOR UNKNOWN INDICATION
     Dosage: UNK, QD
     Route: 048
     Dates: start: 20090625
  7. GILENYA [Suspect]
     Active Substance: FINGOLIMOD HYDROCHLORIDE
     Indication: MULTIPLE SCLEROSIS
     Dosage: 0.5 MG, QD
     Route: 048
     Dates: start: 20150805, end: 20151101
  8. COPAXONE [Concomitant]
     Active Substance: GLATIRAMER ACETATE
     Indication: PRODUCT USED FOR UNKNOWN INDICATION
     Dosage: 40 MG/L, UNK
     Route: 058
  9. VITAMIN D3 [Concomitant]
     Active Substance: CHOLECALCIFEROL
     Indication: PRODUCT USED FOR UNKNOWN INDICATION
     Dosage: 1 DF, QD (2000 U)
     Route: 048

REACTIONS (38)
  - Pyrexia [Unknown]
  - Vomiting [Unknown]
  - Abdominal distension [Unknown]
  - Weight decreased [Unknown]
  - Malaise [Unknown]
  - Diarrhoea [Not Recovered/Not Resolved]
  - Multiple sclerosis [Unknown]
  - Amnesia [Unknown]
  - Muscular weakness [Unknown]
  - Asthenia [Unknown]
  - Abdominal pain [Unknown]
  - Temperature intolerance [Unknown]
  - Cough [Unknown]
  - Oropharyngeal pain [Unknown]
  - Lymphocyte count decreased [Unknown]
  - Bacterial infection [Unknown]
  - Gastrointestinal disorder [Unknown]
  - Chills [Unknown]
  - Monocyte count increased [Unknown]
  - Micturition urgency [Unknown]
  - Dysaesthesia [Unknown]
  - Influenza like illness [Unknown]
  - Inflammation [Unknown]
  - Gastrointestinal sounds abnormal [Unknown]
  - Blood creatinine decreased [Unknown]
  - Headache [Unknown]
  - Sensory loss [Unknown]
  - Nausea [Unknown]
  - Abdominal pain upper [Unknown]
  - Dizziness [Unknown]
  - Gait disturbance [Unknown]
  - Pain [Unknown]
  - Blood urea decreased [Unknown]
  - Paraesthesia [Unknown]
  - Sensory disturbance [Unknown]
  - Mood altered [Recovering/Resolving]
  - Blood pressure increased [Unknown]
  - Fatigue [Unknown]

NARRATIVE: CASE EVENT DATE: 20150819
